FAERS Safety Report 8767910 (Version 1)
Quarter: 2012Q4

REPORT INFORMATION
  Report Type: 
  Country: AU (occurrence: AU)
  Receive Date: 20120905
  Receipt Date: 20120905
  Transmission Date: 20130627
  Serious: Yes (Other)
  Sender: FDA-Public Use
  Company Number: PHHY2012AU074612

PATIENT
  Age: 43 Year
  Sex: Male

DRUGS (4)
  1. CICLOSPORIN [Suspect]
     Indication: PANNICULITIS
     Dosage: 10 mg/kg, QD
  2. CICLOSPORIN [Suspect]
     Indication: HISTIOCYTOSIS HAEMATOPHAGIC
     Dosage: 6 mg/kg, QD
     Dates: end: 199310
  3. PREDNISOLONE [Concomitant]
     Indication: PANNICULITIS
     Dosage: 1 mg/kg, QD
     Route: 048
  4. PREDNISOLONE [Concomitant]
     Indication: HISTIOCYTOSIS HAEMATOPHAGIC
     Dosage: 0.5 mg/kg, QD
     Route: 048
     Dates: end: 199310

REACTIONS (7)
  - Hypertension [Unknown]
  - Proteinuria [Unknown]
  - Pancytopenia [None]
  - Panniculitis [None]
  - Histiocytosis haematophagic [None]
  - Disease recurrence [None]
  - Immune system disorder [None]
